FAERS Safety Report 17242513 (Version 1)
Quarter: 2020Q1

REPORT INFORMATION
  Report Type: Spontaneous
  Country: US (occurrence: US)
  Receive Date: 20200106
  Receipt Date: 20200106
  Transmission Date: 20200409
  Serious: Yes (Life-Threatening, Hospitalization, Disabling, Other)
  Sender: FDA-Public Use
  Company Number: None

PATIENT
  Age: 32 Year
  Sex: Female
  Weight: 57.6 kg

DRUGS (2)
  1. IBUPROFEN. [Suspect]
     Active Substance: IBUPROFEN
     Indication: INFLAMMATION
     Dates: start: 20080701, end: 20190923
  2. IBUPROFEN. [Suspect]
     Active Substance: IBUPROFEN
     Indication: PYREXIA
     Dates: start: 20080701, end: 20190923

REACTIONS (6)
  - Blister [None]
  - Systemic lupus erythematosus [None]
  - Lupus-like syndrome [None]
  - Renal disorder [None]
  - Skin burning sensation [None]
  - Pyrexia [None]

NARRATIVE: CASE EVENT DATE: 20140101
